FAERS Safety Report 6404540-5 (Version None)
Quarter: 2009Q4

REPORT INFORMATION
  Report Type: 
  Country: None (occurrence: None)
  Receive Date: 20091016
  Receipt Date: 20091006
  Transmission Date: 20100525
  Serious: Yes (Other)
  Sender: FDA-Public Use
  Company Number: PHHY2009GB26482

PATIENT
  Age: 82 Year
  Sex: Male

DRUGS (6)
  1. RASILEZ [Suspect]
     Indication: HYPERTENSION
     Dosage: UNK
     Dates: start: 20090601, end: 20090626
  2. IMDUR [Concomitant]
     Dosage: UNK
  3. ASPIRIN [Concomitant]
     Dosage: UNK
  4. NEBIVOLOL [Concomitant]
     Dosage: UNK
  5. TELMISARTAN [Concomitant]
     Dosage: UNK
     Dates: start: 20040101
  6. OMEPRAZOLE [Concomitant]
     Dosage: UNK

REACTIONS (14)
  - ARTHRALGIA [None]
  - BACK PAIN [None]
  - BLOOD URIC ACID INCREASED [None]
  - DISCOMFORT [None]
  - EYE SWELLING [None]
  - INSOMNIA [None]
  - JOINT SWELLING [None]
  - LIP SWELLING [None]
  - MALAISE [None]
  - MUSCULOSKELETAL PAIN [None]
  - OEDEMA PERIPHERAL [None]
  - OROPHARYNGEAL PAIN [None]
  - PAIN IN EXTREMITY [None]
  - THROAT TIGHTNESS [None]
